FAERS Safety Report 5131732-8 (Version None)
Quarter: 2006Q4

REPORT INFORMATION
  Report Type: 
  Country: None (occurrence: None)
  Receive Date: 20061016
  Receipt Date: 20060925
  Transmission Date: 20070319
  Serious: Yes (Other)
  Sender: FDA-Public Use
  Company Number: IN200610001014

PATIENT
  Age: 16 Year
  Sex: Male
  Weight: 47 kg

DRUGS (3)
  1. ATOMOXETINE HYDROCHLORIDE (ATOMOXETINE HYDROCHLORIDE) [Suspect]
     Indication: ATTENTION DEFICIT/HYPERACTIVITY DISORDER
     Dosage: 25 MG, DAILY (1/D), UNK
  2. RISPERIDONE 9RISPERIDONE) [Concomitant]
  3. CARBAMAEPINE (CARBAMAZEPINE) [Concomitant]

REACTIONS (1)
  - URINARY RETENTION [None]
